FAERS Safety Report 21435365 (Version 1)
Quarter: 2022Q4

REPORT INFORMATION
  Report Type: Report from Study
  Country: CO (occurrence: CO)
  Receive Date: 20221010
  Receipt Date: 20221010
  Transmission Date: 20230113
  Serious: Yes (Hospitalization)
  Sender: FDA-Public Use
  Company Number: CO-UCBSA-2022059060

PATIENT
  Age: 65 Year
  Sex: Male

DRUGS (3)
  1. CERTOLIZUMAB PEGOL [Suspect]
     Active Substance: CERTOLIZUMAB PEGOL
     Indication: Rheumatoid arthritis
     Dosage: 400 MILLIGRAM, EV 4 WEEKS
     Route: 058
     Dates: start: 20190921, end: 20220801
  2. METHOTREXATE [Concomitant]
     Active Substance: METHOTREXATE
     Indication: Rheumatoid arthritis
  3. PREDNISOLONE [Concomitant]
     Active Substance: PREDNISOLONE
     Indication: Rheumatoid arthritis

REACTIONS (4)
  - Chest pain [Recovering/Resolving]
  - Peripheral swelling [Recovering/Resolving]
  - Pain in extremity [Recovering/Resolving]
  - Bacterial infection [Recovering/Resolving]

NARRATIVE: CASE EVENT DATE: 20220926
